FAERS Safety Report 17347351 (Version 4)
Quarter: 2021Q1

REPORT INFORMATION
  Report Type: Spontaneous
  Country: US (occurrence: US)
  Receive Date: 20200130
  Receipt Date: 20210222
  Transmission Date: 20210419
  Serious: Yes (Other)
  Sender: FDA-Public Use
  Company Number: US-GILEAD-2020-0448787

PATIENT
  Age: 34 Year
  Sex: Male
  Weight: 65.76 kg

DRUGS (76)
  1. VIREAD [Suspect]
     Active Substance: TENOFOVIR DISOPROXIL FUMARATE
     Dosage: UNK
     Route: 048
     Dates: start: 201103
  2. BIKTARVY [Concomitant]
     Active Substance: BICTEGRAVIR SODIUM\EMTRICITABINE\TENOFOVIR ALAFENAMIDE FUMARATE
  3. LEXIVA [Concomitant]
     Active Substance: FOSAMPRENAVIR CALCIUM
  4. RETROVIR [Concomitant]
     Active Substance: ZIDOVUDINE
  5. RENVELA [Concomitant]
     Active Substance: SEVELAMER CARBONATE
  6. CORTIZONE [HYDROCORTISONE] [Concomitant]
     Active Substance: HYDROCORTISONE
  7. VITAMIN B12 [VITAMIN B12 NOS] [Concomitant]
     Active Substance: CYANOCOBALAMIN
  8. VICOPROFEN [Concomitant]
     Active Substance: HYDROCODONE BITARTRATE\IBUPROFEN
  9. SODIUM CHLORIDE. [Concomitant]
     Active Substance: SODIUM CHLORIDE
  10. LACTULOSE. [Concomitant]
     Active Substance: LACTULOSE
  11. PROMETHAZINE [Concomitant]
     Active Substance: PROMETHAZINE HYDROCHLORIDE
  12. ALBUTEROL [SALBUTAMOL] [Concomitant]
     Active Substance: ALBUTEROL
  13. REYATAZ [Concomitant]
     Active Substance: ATAZANAVIR SULFATE
  14. TIVICAY [Concomitant]
     Active Substance: DOLUTEGRAVIR SODIUM
  15. VIRAMUNE [Concomitant]
     Active Substance: NEVIRAPINE
  16. SODIUM POLYSTYRENE SULFONATE. [Concomitant]
     Active Substance: SODIUM POLYSTYRENE SULFONATE
  17. FENTANYL. [Concomitant]
     Active Substance: FENTANYL
  18. PENICILLIN V POTASSIUM. [Concomitant]
     Active Substance: PENICILLIN V POTASSIUM
  19. VALIUM [Concomitant]
     Active Substance: DIAZEPAM
  20. EPIVIR [Concomitant]
     Active Substance: LAMIVUDINE
  21. VIRACEPT [Concomitant]
     Active Substance: NELFINAVIR MESYLATE
  22. ZERIT [Concomitant]
     Active Substance: STAVUDINE
  23. EXALGO [Concomitant]
     Active Substance: HYDROMORPHONE HYDROCHLORIDE
  24. LORAZEPAM. [Concomitant]
     Active Substance: LORAZEPAM
  25. AMBIEN [Concomitant]
     Active Substance: ZOLPIDEM TARTRATE
  26. VISTARIL [Concomitant]
     Active Substance: HYDROXYZINE PAMOATE
  27. SOMA [Concomitant]
     Active Substance: CARISOPRODOL
  28. FOLATE [Concomitant]
     Active Substance: FOLATE SODIUM
  29. LABETALOL [Concomitant]
     Active Substance: LABETALOL\LABETALOL HYDROCHLORIDE
  30. VIREAD [Suspect]
     Active Substance: TENOFOVIR DISOPROXIL FUMARATE
     Indication: HIV INFECTION
     Dosage: UNK
     Route: 048
     Dates: start: 201407
  31. ATRIPLA [Suspect]
     Active Substance: EFAVIRENZ\EMTRICITABINE\TENOFOVIR DISOPROXIL FUMARATE
     Indication: HIV INFECTION
     Route: 048
  32. VERSED [Concomitant]
     Active Substance: MIDAZOLAM HYDROCHLORIDE
  33. HEPARIN [Concomitant]
     Active Substance: HEPARIN SODIUM
  34. COLACE [Concomitant]
     Active Substance: DOCUSATE SODIUM
  35. ZIAGEN [Concomitant]
     Active Substance: ABACAVIR SULFATE
  36. CRIXIVAN [Concomitant]
     Active Substance: INDINAVIR SULFATE
  37. SUSTIVA [Concomitant]
     Active Substance: EFAVIRENZ
  38. HYDROCODONE/ACETAMINOPHEN [Concomitant]
     Active Substance: ACETAMINOPHEN\HYDROCODONE
  39. LOPRESSOR [Concomitant]
     Active Substance: METOPROLOL TARTRATE
  40. OXYCODONE HYDROCHLORIDE. [Concomitant]
     Active Substance: OXYCODONE HYDROCHLORIDE
  41. OXYCODONE AND ACETAMINOPHEN [Concomitant]
     Active Substance: ACETAMINOPHEN\OXYCODONE HYDROCHLORIDE
  42. ROCEPHIN [Concomitant]
     Active Substance: CEFTRIAXONE SODIUM
  43. MORPHINE [Concomitant]
     Active Substance: MORPHINE
  44. RACEPINEPHRINE [RACEPINEFRINE] [Concomitant]
  45. GLYCOPYRROLATE [GLYCOPYRRONIUM] [Concomitant]
     Active Substance: GLYCOPYRRONIUM
  46. ANCEF [CEFTRIAXONE SODIUM] [Concomitant]
  47. MAGNESIUM CITRATE. [Concomitant]
     Active Substance: MAGNESIUM CITRATE
  48. COMBIVIR [Concomitant]
     Active Substance: LAMIVUDINE\ZIDOVUDINE
  49. NORVIR [Concomitant]
     Active Substance: RITONAVIR
  50. VIRAMUNE XR [Concomitant]
     Active Substance: NEVIRAPINE
  51. XANAX [Concomitant]
     Active Substance: ALPRAZOLAM
  52. PRINIVIL [Concomitant]
     Active Substance: LISINOPRIL
  53. RENAGEL [Concomitant]
     Active Substance: SEVELAMER HYDROCHLORIDE
  54. DILAUDID [Concomitant]
     Active Substance: HYDROMORPHONE HYDROCHLORIDE
  55. NORVASC [Concomitant]
     Active Substance: AMLODIPINE BESYLATE
  56. MIRALAX [Concomitant]
     Active Substance: POLYETHYLENE GLYCOL 3350
  57. TRAMADOL. [Concomitant]
     Active Substance: TRAMADOL
  58. PHOSPHORIC ACID [Concomitant]
     Active Substance: PHOSPHORIC ACID
  59. DAPSONE. [Concomitant]
     Active Substance: DAPSONE
  60. CALCIUM ACETATE. [Concomitant]
     Active Substance: CALCIUM ACETATE
  61. LIDOCAINE. [Concomitant]
     Active Substance: LIDOCAINE
  62. AZITHROMYCIN ANHYDROUS. [Concomitant]
     Active Substance: AZITHROMYCIN ANHYDROUS
  63. LEUCOVORIN [FOLINIC ACID] [Concomitant]
     Active Substance: LEUCOVORIN
  64. HYDRALAZINE [Concomitant]
     Active Substance: HYDRALAZINE HYDROCHLORIDE
  65. REGLAN [Concomitant]
     Active Substance: METOCLOPRAMIDE HYDROCHLORIDE
  66. SENNA S [Concomitant]
     Active Substance: DOCUSATE SODIUM\SENNA LEAF
  67. IMIQUIMOD. [Concomitant]
     Active Substance: IMIQUIMOD
  68. TRUVADA [Suspect]
     Active Substance: EMTRICITABINE\TENOFOVIR DISOPROXIL FUMARATE
     Indication: HIV INFECTION
     Dosage: UNK
     Route: 048
     Dates: start: 2005, end: 2016
  69. COMPLERA [Suspect]
     Active Substance: EMTRICITABINE\RILPIVIRINE HYDROCHLORIDE\TENOFOVIR DISOPROXIL FUMARATE
     Indication: HIV INFECTION
     Dosage: UNK
     Route: 065
     Dates: start: 2017, end: 2018
  70. CLONIDINE. [Concomitant]
     Active Substance: CLONIDINE
  71. MINOXIDIL. [Concomitant]
     Active Substance: MINOXIDIL
  72. BENADRYL [Concomitant]
     Active Substance: DIPHENHYDRAMINE HYDROCHLORIDE
  73. ZOFRAN [Concomitant]
     Active Substance: ONDANSETRON HYDROCHLORIDE
  74. PEPCID [Concomitant]
     Active Substance: FAMOTIDINE
  75. KIONEX [Concomitant]
     Active Substance: SODIUM POLYSTYRENE SULFONATE
  76. KETOROLAC [Concomitant]
     Active Substance: KETOROLAC TROMETHAMINE

REACTIONS (8)
  - Anxiety [Not Recovered/Not Resolved]
  - Anhedonia [Not Recovered/Not Resolved]
  - Economic problem [Not Recovered/Not Resolved]
  - Pain [Not Recovered/Not Resolved]
  - Emotional distress [Not Recovered/Not Resolved]
  - Acute kidney injury [Recovered/Resolved]
  - End stage renal disease [Not Recovered/Not Resolved]
  - Chronic kidney disease [Not Recovered/Not Resolved]

NARRATIVE: CASE EVENT DATE: 2009
